FAERS Safety Report 11506878 (Version 2)
Quarter: 2015Q4

REPORT INFORMATION
  Report Type: Report from Study
  Country: JP (occurrence: JP)
  Receive Date: 20150915
  Receipt Date: 20151016
  Transmission Date: 20160304
  Serious: Yes (Hospitalization)
  Sender: FDA-Public Use
  Company Number: JP-EISAI MEDICAL RESEARCH-EC-2015-010359

PATIENT
  Age: 74 Year
  Sex: Female
  Weight: 53 kg

DRUGS (15)
  1. MARZULENE-S [Concomitant]
     Active Substance: SODIUM GUALENATE
  2. NEUROVITAN [Concomitant]
     Active Substance: VITAMINS
  3. FEMARA [Concomitant]
     Active Substance: LETROZOLE
  4. HALAVEN [Suspect]
     Active Substance: ERIBULIN MESYLATE
     Route: 041
     Dates: start: 20150410, end: 20150410
  5. HALAVEN [Suspect]
     Active Substance: ERIBULIN MESYLATE
     Route: 041
     Dates: start: 20150424, end: 20150619
  6. SELBEX [Concomitant]
     Active Substance: TEPRENONE
  7. G-LASTA [Concomitant]
     Active Substance: PEGFILGRASTIM
  8. LOXONIN [Concomitant]
     Active Substance: LOXOPROFEN SODIUM
  9. MOBIC [Concomitant]
     Active Substance: MELOXICAM
  10. IRBETAN [Concomitant]
     Active Substance: IRBESARTAN
  11. GASMOTIN [Concomitant]
     Active Substance: MOSAPRIDE CITRATE
  12. MAGMITT [Concomitant]
     Active Substance: MAGNESIUM OXIDE
  13. HALAVEN [Suspect]
     Active Substance: ERIBULIN MESYLATE
     Route: 041
     Dates: start: 20150227, end: 20150327
  14. HALAVEN [Suspect]
     Active Substance: ERIBULIN MESYLATE
     Indication: BREAST CANCER
     Route: 041
     Dates: start: 20150123, end: 20150206
  15. AMLODIN [Concomitant]
     Active Substance: AMLODIPINE BESYLATE

REACTIONS (5)
  - Leukopenia [Recovered/Resolved]
  - Febrile neutropenia [Recovered/Resolved]
  - Neutropenia [Recovered/Resolved]
  - Anaemia [Recovered/Resolved]
  - Blood creatinine increased [Recovered/Resolved]

NARRATIVE: CASE EVENT DATE: 20150130
